FAERS Safety Report 10658432 (Version 1)
Quarter: 2014Q4

REPORT INFORMATION
  Report Type: Spontaneous
  Country: US (occurrence: None)
  Receive Date: 20141205
  Receipt Date: 20141205
  Transmission Date: 20150529
  Serious: Yes (Other)
  Sender: FDA-Public Use
  Company Number: USA-2014101383

PATIENT
  Age: 74 Year
  Sex: Male

DRUGS (1)
  1. POMALIDOMIDE [Suspect]
     Active Substance: POMALIDOMIDE
     Indication: PLASMA CELL MYELOMA
     Dosage: 3 MG, 14 IN 28 D, PO
     Route: 048
     Dates: start: 20140904, end: 20140917

REACTIONS (2)
  - Dyspnoea [None]
  - Bronchitis [None]

NARRATIVE: CASE EVENT DATE: 20140917
